FAERS Safety Report 13542333 (Version 1)
Quarter: 2017Q2

REPORT INFORMATION
  Report Type: Spontaneous
  Country: US (occurrence: US)
  Receive Date: 20170512
  Receipt Date: 20170512
  Transmission Date: 20170830
  Serious: No
  Sender: FDA-Public Use
  Company Number: US-ROCHE-731980

PATIENT
  Age: 64 Year
  Sex: Female

DRUGS (2)
  1. XELODA [Suspect]
     Active Substance: CAPECITABINE
     Indication: BREAST CANCER METASTATIC
     Dosage: DOSE-2 TABS AM, 3 TABS PM, FREQUENCY: 1 WK ON AND 1 WK OFF
     Route: 048
  2. AVASTIN [Suspect]
     Active Substance: BEVACIZUMAB
     Indication: BREAST CANCER METASTATIC
     Route: 042

REACTIONS (3)
  - Visual impairment [Unknown]
  - Cataract [Unknown]
  - Palmar-plantar erythrodysaesthesia syndrome [Recovered/Resolved]
